FAERS Safety Report 22234251 (Version 1)
Quarter: 2023Q2

REPORT INFORMATION
  Report Type: Spontaneous
  Country: US (occurrence: US)
  Receive Date: 20230420
  Receipt Date: 20230420
  Transmission Date: 20230722
  Serious: No
  Sender: FDA-Public Use
  Company Number: US-LEO Pharma-351381

PATIENT
  Sex: Male

DRUGS (4)
  1. TRIAMCINOLONE [Concomitant]
     Active Substance: TRIAMCINOLONE
     Indication: Product used for unknown indication
     Dosage: NOT REPORTED
  2. ADBRY [Suspect]
     Active Substance: TRALOKINUMAB-LDRM
     Indication: Dermatitis atopic
     Dosage: STARTED A MONTH AGO WITH 4 INJECTIONS FOR THE INITIAL DOSE THEN AT 2 INJECTIONS EVERY TWO WEEKS
     Route: 058
  3. HYDROCORTISONE [Concomitant]
     Active Substance: HYDROCORTISONE
     Indication: Product used for unknown indication
     Dosage: 2.5 PERCENT
  4. DEXTROAMPHETAMINE [Concomitant]
     Active Substance: DEXTROAMPHETAMINE
     Indication: Product used for unknown indication
     Dosage: NOT REPORTED

REACTIONS (5)
  - Skin exfoliation [Unknown]
  - Skin haemorrhage [Unknown]
  - Pruritus [Unknown]
  - Sleep disorder [Unknown]
  - Dry skin [Unknown]
